FAERS Safety Report 20045416 (Version 1)
Quarter: 2021Q4

REPORT INFORMATION
  Report Type: Spontaneous
  Country: CN (occurrence: CN)
  Receive Date: 20211108
  Receipt Date: 20211108
  Transmission Date: 20220303
  Serious: Yes (Other)
  Sender: FDA-Public Use
  Company Number: CN-PFIZER INC-202101484285

PATIENT
  Age: 14 Year
  Sex: Female

DRUGS (1)
  1. METHOTREXATE [Suspect]
     Active Substance: METHOTREXATE
     Indication: Chemotherapy
     Dosage: 4.5 G, 1X/DAY
     Route: 041
     Dates: start: 20211021, end: 20211022

REACTIONS (2)
  - Mouth ulceration [Recovering/Resolving]
  - Oral disorder [Unknown]

NARRATIVE: CASE EVENT DATE: 20211026
